FAERS Safety Report 6847198-3 (Version None)
Quarter: 2010Q3

REPORT INFORMATION
  Report Type: 
  Country: None (occurrence: None)
  Receive Date: 20100716
  Receipt Date: 20100708
  Transmission Date: 20110219
  Serious: Yes (Life-Threatening, Disabling, Other)
  Sender: FDA-Public Use
  Company Number: US-BAXTER-2010BH016720

PATIENT
  Age: 65 Year
  Sex: Female
  Weight: 109 kg

DRUGS (11)
  1. GAMMAGARD S/D [Suspect]
     Indication: IMMUNODEFICIENCY COMMON VARIABLE
     Route: 042
     Dates: start: 20100401, end: 20100401
  2. GAMMAGARD S/D [Suspect]
     Indication: PRIMARY IMMUNODEFICIENCY SYNDROME
     Route: 042
     Dates: start: 20100401, end: 20100401
  3. GAMMAGARD S/D [Suspect]
     Route: 042
     Dates: start: 20100401, end: 20100401
  4. GAMMAGARD S/D [Suspect]
     Route: 042
     Dates: start: 20100401, end: 20100401
  5. GAMMAGARD S/D [Suspect]
     Route: 042
     Dates: start: 20100512, end: 20100512
  6. GAMMAGARD S/D [Suspect]
     Route: 042
     Dates: start: 20100512, end: 20100512
  7. GAMMAGARD S/D [Suspect]
     Route: 042
     Dates: start: 20100512, end: 20100512
  8. GAMMAGARD S/D [Suspect]
     Route: 042
     Dates: start: 20100512, end: 20100512
  9. ADVAIR DISKUS 100/50 [Concomitant]
     Route: 055
  10. AZELASTINE HCL [Concomitant]
  11. MULTI-VITAMINS [Concomitant]

REACTIONS (2)
  - HYPERTENSION [None]
  - TACHYCARDIA [None]
